FAERS Safety Report 7785657-X (Version None)
Quarter: 2011Q3

REPORT INFORMATION
  Report Type: 
  Country: None (occurrence: None)
  Receive Date: 20110929
  Receipt Date: 20110929
  Transmission Date: 20111222
  Serious: Yes (Life-Threatening, Other)
  Sender: FDA-Public Use
  Company Number: None

PATIENT
  Age: 35 Year
  Sex: Male
  Weight: 81.646 kg

DRUGS (2)
  1. CLOMIPRAMINE HCL [Suspect]
     Indication: BIPOLAR I DISORDER
     Dosage: 100MG
     Route: 048
     Dates: start: 20070107, end: 20110928
  2. CLOMIPRAMINE HCL [Suspect]
     Indication: DEPRESSION
     Dosage: 100MG
     Route: 048
     Dates: start: 20070107, end: 20110928

REACTIONS (8)
  - ANXIETY [None]
  - LOSS OF CONSCIOUSNESS [None]
  - NAUSEA [None]
  - CONFUSIONAL STATE [None]
  - VERTIGO [None]
  - TREMOR [None]
  - HYPERHIDROSIS [None]
  - ABDOMINAL PAIN [None]
